FAERS Safety Report 4968525-8 (Version None)
Quarter: 2006Q2

REPORT INFORMATION
  Report Type: 
  Country: None (occurrence: None)
  Receive Date: 20060410
  Receipt Date: 20060403
  Transmission Date: 20061013
  Serious: Yes (Other)
  Sender: FDA-Public Use
  Company Number: US-AVENTIS-200613204US

PATIENT
  Age: 32 Year

DRUGS (3)
  1. ARAVA [Suspect]
     Indication: RHEUMATOID ARTHRITIS
     Dosage: DOSE: UNKNOWN
  2. PREDNISONE [Concomitant]
     Dosage: DOSE: UNKNOWN
  3. METHOTREXATE [Concomitant]
     Dosage: DOSE: UNKNOWN

REACTIONS (1)
  - RENAL INFARCT [None]
